FAERS Safety Report 20195610 (Version 2)
Quarter: 2022Q1

REPORT INFORMATION
  Report Type: Report from Study
  Country: US (occurrence: US)
  Receive Date: 20211216
  Receipt Date: 20220304
  Transmission Date: 20220423
  Serious: Yes (Hospitalization)
  Sender: FDA-Public Use
  Company Number: US-PFIZER INC-2021729072

PATIENT
  Age: 66 Year
  Sex: Female
  Weight: 48.1 kg

DRUGS (17)
  1. TALAZOPARIB [Suspect]
     Active Substance: TALAZOPARIB
     Indication: Cholangiocarcinoma
     Dosage: 75 MG, 1X/DAY (QD)
     Route: 048
     Dates: start: 20210605
  2. TYLENOL [Concomitant]
     Active Substance: ACETAMINOPHEN
     Indication: Abdominal pain
     Dosage: 500 MG, AS NEEDED
     Route: 048
     Dates: start: 2014
  3. DELSYM [Concomitant]
     Active Substance: DEXTROMETHORPHAN
     Indication: Cough
     Dosage: 30 MG, AS NEEDED (LIQ)
     Route: 048
     Dates: start: 2015
  4. ROCKLATAN [Concomitant]
     Active Substance: LATANOPROST\NETARSUDIL MESYLATE
     Indication: Glaucoma
     Dosage: OPHT, 1-2 DROPS DAILY (LIQ)
     Route: 031
     Dates: start: 202101
  5. SENNA-S [DOCUSATE SODIUM;SENNOSIDE A+B] [Concomitant]
     Indication: Constipation
     Dosage: [DOCUSATE SODIUM 50 MG]/ [SENNOSIDE 8.6 MG], AS NEEDED
     Route: 048
     Dates: start: 201810
  6. ZYRTEC [Concomitant]
     Active Substance: CETIRIZINE HYDROCHLORIDE
     Indication: Sinusitis
     Dosage: 10 MG, 1X/DAY (QD)
     Route: 048
     Dates: start: 2015
  7. KLONOPIN [Concomitant]
     Active Substance: CLONAZEPAM
     Indication: Insomnia
     Dosage: 1 MG, 1X/DAY AT NIGHT
     Route: 048
     Dates: start: 2019
  8. COSOPT [Concomitant]
     Active Substance: DORZOLAMIDE HYDROCHLORIDE\TIMOLOL MALEATE
     Indication: Glaucoma
     Dosage: OPHT, 1-2 DROPS, 1X/DAY AT BEDTIME (HS)
     Route: 031
     Dates: start: 2019
  9. ATROVENT [Concomitant]
     Active Substance: IPRATROPIUM BROMIDE
     Indication: Upper-airway cough syndrome
     Dosage: LIQ, 0.03 %, EVERY 12 HOURS (Q12H)
     Route: 045
     Dates: start: 2021
  10. IMITREX [Concomitant]
     Active Substance: SUMATRIPTAN SUCCINATE
     Indication: Headache
     Dosage: 100 MG, AS NEEDED (PRN)
     Route: 048
     Dates: start: 1995
  11. PROCHLORPERAZINE EDISYLATE [Concomitant]
     Active Substance: PROCHLORPERAZINE EDISYLATE
     Indication: Nausea
     Dosage: 10 MG, AS NEEDED
     Route: 048
     Dates: start: 201810
  12. TRINTELLIX [Concomitant]
     Active Substance: VORTIOXETINE HYDROBROMIDE
     Indication: Anxiety
     Dosage: 10 MG, 1X/DAY (QD)
     Route: 048
     Dates: start: 20210302
  13. PULMICORT TURBUHALER [Concomitant]
     Active Substance: BUDESONIDE
     Indication: Upper-airway cough syndrome
     Dosage: ONE SPRAY, 1X/DAY (QD)
     Route: 061
     Dates: start: 20210302
  14. ULTRAM [Concomitant]
     Active Substance: TRAMADOL HYDROCHLORIDE
     Indication: Abdominal pain
     Dosage: 50 MG, EVERY 6 HOURS (Q6HR)
     Route: 048
     Dates: start: 20210324
  15. SINGULAIR [Concomitant]
     Active Substance: MONTELUKAST SODIUM
     Indication: Sinusitis
     Dosage: 10 MG, 1X/DAY (QD)
     Route: 048
     Dates: start: 20180911
  16. SYNTHROID [Concomitant]
     Active Substance: LEVOTHYROXINE SODIUM
     Indication: Hypothyroidism
     Dosage: 50 UG, 1X/DAY
     Route: 048
     Dates: start: 20180911
  17. PROTONIX [Concomitant]
     Active Substance: PANTOPRAZOLE SODIUM
     Indication: Gastrooesophageal reflux disease
     Dosage: 40 MG, 1X/DAY (QD)
     Route: 048
     Dates: start: 20210410

REACTIONS (1)
  - Atrial fibrillation [Not Recovered/Not Resolved]

NARRATIVE: CASE EVENT DATE: 20210615
